FAERS Safety Report 18145150 (Version 1)
Quarter: 2020Q3

REPORT INFORMATION
  Report Type: Spontaneous
  Country: US (occurrence: US)
  Receive Date: 20200813
  Receipt Date: 20200813
  Transmission Date: 20201103
  Serious: No
  Sender: FDA-Public Use
  Company Number: US-PFIZER INC-2020307202

PATIENT
  Age: 74 Year
  Sex: Female
  Weight: 87.54 kg

DRUGS (1)
  1. IBRANCE [Suspect]
     Active Substance: PALBOCICLIB
     Indication: BREAST CANCER
     Dosage: 250 (UNSURE OF HER DOSAGE UNITS), UNK

REACTIONS (1)
  - White blood cell count decreased [Unknown]
